FAERS Safety Report 4501785-6 (Version None)
Quarter: 2004Q4

REPORT INFORMATION
  Report Type: 
  Country: None (occurrence: None)
  Receive Date: 20041109
  Receipt Date: 20041104
  Transmission Date: 20050328
  Serious: Yes (Life-Threatening)
  Sender: FDA-Public Use
  Company Number: 200413034GDS

PATIENT
  Age: 78 Year
  Sex: Female

DRUGS (8)
  1. ASPIRIN [Suspect]
     Dosage: 100 MG, QD, ORAL
     Route: 048
     Dates: start: 20041009, end: 20041018
  2. ENOXAPARIN SODIUM [Suspect]
     Dosage: 4000 IU, QID, SUBCUTANEOUS
     Route: 058
     Dates: start: 20041009, end: 20041017
  3. COUMADIN [Suspect]
     Dosage: 5 MG, QD, ORAL
     Route: 048
     Dates: start: 20041013, end: 20041017
  4. LANSOX [Concomitant]
  5. TRIATEC [Concomitant]
  6. NORVASC [Concomitant]
  7. LOPRESSOR [Concomitant]
  8. SIVASTIN [Concomitant]

REACTIONS (4)
  - HYPOVOLAEMIC SHOCK [None]
  - INTERNATIONAL NORMALISED RATIO DECREASED [None]
  - RETROPERITONEAL HAEMATOMA [None]
  - SHOCK HAEMORRHAGIC [None]
